FAERS Safety Report 17017100 (Version 1)
Quarter: 2019Q4

REPORT INFORMATION
  Report Type: Spontaneous
  Country: JP (occurrence: JP)
  Receive Date: 20191111
  Receipt Date: 20191111
  Transmission Date: 20200122
  Serious: Yes (Hospitalization, Other)
  Sender: FDA-Public Use
  Company Number: JP-SA-2019SA307748

PATIENT
  Age: 82 Year
  Sex: Male

DRUGS (1)
  1. LANTUS SOLOSTAR [Suspect]
     Active Substance: INSULIN GLARGINE
     Indication: TYPE 2 DIABETES MELLITUS
     Dosage: 32 UNITS/DAY
     Route: 058

REACTIONS (4)
  - Hypothyroidism [Recovering/Resolving]
  - Hypoglycaemia [Recovering/Resolving]
  - Cognitive disorder [Unknown]
  - Hypoglycaemic unconsciousness [Recovering/Resolving]
